FAERS Safety Report 9127548 (Version 1)
Quarter: 2013Q1

REPORT INFORMATION
  Report Type: Report from Study
  Country: TR (occurrence: TR)
  Receive Date: 20130228
  Receipt Date: 20130228
  Transmission Date: 20140127
  Serious: Yes (Death, Other)
  Sender: FDA-Public Use
  Company Number: TR-PFIZER INC-2013070543

PATIENT
  Sex: Male

DRUGS (3)
  1. OXALIPLATIN [Suspect]
     Indication: COLORECTAL CANCER
     Dosage: UNK
  2. FLUOROURACIL [Suspect]
     Indication: COLORECTAL CANCER
     Dosage: UNK
  3. FOLINIC ACID [Suspect]
     Indication: COLORECTAL CANCER
     Dosage: UNK

REACTIONS (2)
  - Febrile neutropenia [Fatal]
  - Mucosal inflammation [Unknown]
